FAERS Safety Report 20044690 (Version 1)
Quarter: 2021Q4

REPORT INFORMATION
  Report Type: Report from Study
  Country: NL (occurrence: NL)
  Receive Date: 20211108
  Receipt Date: 20211108
  Transmission Date: 20220303
  Serious: Yes (Other)
  Sender: FDA-Public Use
  Company Number: NL-NOVARTISPH-NVSC2021NL251601

PATIENT
  Sex: Female

DRUGS (1)
  1. ACLASTA [Suspect]
     Active Substance: ZOLEDRONIC ACID
     Indication: Osteoporosis
     Dosage: 5 MG, Q12MO (1X 52 WEEKS)
     Route: 042
     Dates: start: 20200903

REACTIONS (4)
  - Diabetes mellitus [Recovering/Resolving]
  - Thirst [Unknown]
  - Weight decreased [Unknown]
  - Dry mouth [Unknown]
